FAERS Safety Report 5196380-2 (Version None)
Quarter: 2006Q4

REPORT INFORMATION
  Report Type: 
  Country: None (occurrence: None)
  Receive Date: 20061222
  Receipt Date: 20061212
  Transmission Date: 20070319
  Serious: Yes (Death, Hospitalization)
  Sender: FDA-Public Use
  Company Number: 233751

PATIENT
  Age: 57 Year
  Sex: Male

DRUGS (4)
  1. MABTHERA (RITUXIMAB) CONC FOR SOLUTION FOR INFUSION [Suspect]
     Indication: CHRONIC LYMPHOCYTIC LEUKAEMIA
     Dosage: UNK, UNK, UNK
  2. FLUDARABINE PHOSPHATE [Suspect]
     Indication: CHRONIC LYMPHOCYTIC LEUKAEMIA
     Dosage: UNK, UNK, UNK
  3. CYCLOPHOSPHAMIDE [Suspect]
     Indication: CHRONIC LYMPHOCYTIC LEUKAEMIA
     Dosage: UNK, UNK, UNK
  4. NEUPOGEN [Concomitant]

REACTIONS (7)
  - ACUTE HEPATIC FAILURE [None]
  - ANAEMIA [None]
  - HEADACHE [None]
  - HEPATITIS B ANTIGEN POSITIVE [None]
  - HOT FLUSH [None]
  - MALAISE [None]
  - NAUSEA [None]
